FAERS Safety Report 12333564 (Version 1)
Quarter: 2016Q2

REPORT INFORMATION
  Report Type: Spontaneous
  Country: US (occurrence: US)
  Receive Date: 20160504
  Receipt Date: 20160504
  Transmission Date: 20160815
  Serious: No
  Sender: FDA-Public Use
  Company Number: US-ROCHE-ITM201506IM017905

PATIENT
  Sex: Female
  Weight: 69.46 kg

DRUGS (3)
  1. OFEV [Concomitant]
     Active Substance: NINTEDANIB
  2. ESBRIET [Suspect]
     Active Substance: PIRFENIDONE
     Indication: IDIOPATHIC PULMONARY FIBROSIS
     Route: 048
     Dates: start: 20150417
  3. VENTAVIS [Concomitant]
     Active Substance: ILOPROST
     Route: 065
     Dates: end: 20151020

REACTIONS (9)
  - Oropharyngeal pain [Unknown]
  - Diarrhoea [Not Recovered/Not Resolved]
  - Epistaxis [Unknown]
  - Nasopharyngitis [Not Recovered/Not Resolved]
  - Dyspnoea [Unknown]
  - Headache [Recovered/Resolved]
  - Vomiting [Recovered/Resolved]
  - Rhinorrhoea [Unknown]
  - Asthenia [Unknown]
